FAERS Safety Report 10875435 (Version 1)
Quarter: 2015Q1

REPORT INFORMATION
  Report Type: Spontaneous
  Country: US (occurrence: US)
  Receive Date: 20150227
  Receipt Date: 20150227
  Transmission Date: 20150721
  Serious: No
  Sender: FDA-Public Use
  Company Number: US-AMGEN-USASP2014021651

PATIENT
  Age: 50 Year
  Sex: Female
  Weight: 63.04 kg

DRUGS (11)
  1. IBUPROFEN. [Concomitant]
     Active Substance: IBUPROFEN
     Dosage: 800 MG, UNK
  2. NAPROXEN. [Concomitant]
     Active Substance: NAPROXEN
     Dosage: 250 MG, UNK
  3. FOLIC ACID. [Concomitant]
     Active Substance: FOLIC ACID
     Dosage: 1 MG, UNK
  4. COD LIVER OIL [Concomitant]
     Active Substance: COD LIVER OIL
     Dosage: UNK
  5. ENBREL [Suspect]
     Active Substance: ETANERCEPT
     Indication: PRODUCT USED FOR UNKNOWN INDICATION
     Dosage: UNK
     Route: 065
  6. XELJANZ [Suspect]
     Active Substance: TOFACITINIB CITRATE
     Indication: PRODUCT USED FOR UNKNOWN INDICATION
     Dosage: 5 MG, QD
     Route: 048
  7. FERROUS SULFATE [Concomitant]
     Active Substance: FERROUS SULFATE\FERROUS SULFATE, DRIED
     Dosage: UNK
  8. PREDNISONE. [Concomitant]
     Active Substance: PREDNISONE
     Dosage: 1 MG, UNK
  9. DIFLUCAN [Concomitant]
     Active Substance: FLUCONAZOLE
     Dosage: 150 MG, UNK
  10. RESTASIS [Concomitant]
     Active Substance: CYCLOSPORINE
     Dosage: UNK
  11. REPHRESH [Concomitant]
     Dosage: UNK

REACTIONS (4)
  - Sneezing [Unknown]
  - Oropharyngeal pain [Unknown]
  - Cough [Unknown]
  - Drug hypersensitivity [Unknown]

NARRATIVE: CASE EVENT DATE: 20140321
